FAERS Safety Report 5301838-9 (Version None)
Quarter: 2007Q1

REPORT INFORMATION
  Report Type: 
  Country: None (occurrence: None)
  Receive Date: 20070201
  Receipt Date: 20060101
  Transmission Date: 20070707
  Serious: No
  Sender: FDA-Public Use
  Company Number: 2006PV026835

PATIENT
  Age: 71 Year
  Sex: Female
  Weight: 76.2043 kg

DRUGS (2)
  1. BYETTA [Suspect]
     Indication: DIABETES MELLITUS INSULIN-DEPENDENT
     Dosage: 5 MCG;BID;SC
     Route: 058
     Dates: start: 20061001, end: 20061211
  2. INSULIN [Concomitant]

REACTIONS (7)
  - ASTHENIA [None]
  - FATIGUE [None]
  - MYALGIA [None]
  - PAIN IN JAW [None]
  - SINUS HEADACHE [None]
  - SINUSITIS [None]
  - TOOTHACHE [None]
